FAERS Safety Report 22146548 (Version 1)
Quarter: 2023Q1

REPORT INFORMATION
  Report Type: Spontaneous
  Country: BR (occurrence: BR)
  Receive Date: 20230328
  Receipt Date: 20230328
  Transmission Date: 20230418
  Serious: Yes (Hospitalization)
  Sender: FDA-Public Use
  Company Number: BR-TORRENT-00005932

PATIENT
  Sex: Male
  Weight: 28 kg

DRUGS (2)
  1. LAMOTRIGINE [Suspect]
     Active Substance: LAMOTRIGINE
     Indication: Epilepsy
     Dosage: 1 TABLET OF 100 MG IN THE MORNING AND 1 TABLET OF 100 MG AT NIGHT
     Route: 048
     Dates: start: 202109
  2. CARBAMAZEPINE [Concomitant]
     Active Substance: CARBAMAZEPINE
     Indication: Epilepsy
     Dosage: UNKNOWN
     Route: 065
     Dates: end: 202210

REACTIONS (9)
  - Headache [Recovering/Resolving]
  - Pain [Recovering/Resolving]
  - Syncope [Recovered/Resolved]
  - Hospitalisation [Recovered/Resolved]
  - Depressive symptom [Recovering/Resolving]
  - Crying [Recovering/Resolving]
  - Condition aggravated [Not Recovered/Not Resolved]
  - Product prescribing error [Unknown]
  - Product administration error [Unknown]

NARRATIVE: CASE EVENT DATE: 20210101
